FAERS Safety Report 9888028 (Version 2)
Quarter: 2014Q3

REPORT INFORMATION
  Report Type: Spontaneous
  Country: US (occurrence: US)
  Receive Date: 20140211
  Receipt Date: 20140804
  Transmission Date: 20150326
  Serious: Yes (Hospitalization, Other)
  Sender: FDA-Public Use
  Company Number: US-009507513-1402USA004337

PATIENT
  Sex: Female

DRUGS (1)
  1. NUVARING [Suspect]
     Active Substance: ETHINYL ESTRADIOL\ETONOGESTREL
     Indication: CONTRACEPTION
     Dosage: UNK
     Route: 067
     Dates: start: 20130105, end: 20130126

REACTIONS (8)
  - Pulmonary embolism [Unknown]
  - Unintended pregnancy [Unknown]
  - Haemorrhage in pregnancy [Recovered/Resolved]
  - Vomiting in pregnancy [Unknown]
  - Constipation [Unknown]
  - Leukocytosis [Unknown]
  - Protein S deficiency [Unknown]
  - Abdominal pain lower [Unknown]

NARRATIVE: CASE EVENT DATE: 2013
